FAERS Safety Report 6586022-3 (Version None)
Quarter: 2010Q1

REPORT INFORMATION
  Report Type: 
  Country: None (occurrence: None)
  Receive Date: 20100216
  Receipt Date: 20100216
  Transmission Date: 20100710
  Serious: Yes (Hospitalization)
  Sender: FDA-Public Use
  Company Number: None

PATIENT
  Age: 70 Year
  Sex: Female
  Weight: 37.6486 kg

DRUGS (10)
  1. BEVACIZUMAB [Suspect]
     Indication: NON-SMALL CELL LUNG CANCER
     Dosage: 15 MG/KG Q 3 WEEKS
     Dates: start: 20100205
  2. ERLOTINIB [Suspect]
     Indication: NON-SMALL CELL LUNG CANCER
     Dosage: 150MG PO 1 DAILY
     Route: 048
     Dates: start: 20100205
  3. CALCIUM + D OR [Concomitant]
  4. CLEOCIN T [Concomitant]
  5. HYDROCORTISONE [Concomitant]
  6. MEGACE [Concomitant]
  7. MINOCYCLINE HCL [Concomitant]
  8. PERCOCET [Concomitant]
  9. PROAIR HFA [Concomitant]
  10. VITAMIN D [Concomitant]

REACTIONS (2)
  - PLEURAL EFFUSION [None]
  - PNEUMONIA [None]
